FAERS Safety Report 6656851-6 (Version None)
Quarter: 2010Q1

REPORT INFORMATION
  Report Type: 
  Country: None (occurrence: None)
  Receive Date: 20100325
  Receipt Date: 20100315
  Transmission Date: 20100710
  Serious: Yes (Hospitalization, Other)
  Sender: FDA-Public Use
  Company Number: 232840J10USA

PATIENT
  Age: 41 Year
  Sex: Female

DRUGS (1)
  1. REBIF [Suspect]
     Indication: MULTIPLE SCLEROSIS
     Dosage: 22 MCG, 3 IN 1 WEEKS, SUBCUTANEOUS
     Route: 058
     Dates: start: 20100111

REACTIONS (12)
  - ABASIA [None]
  - DYSGEUSIA [None]
  - DYSPNOEA [None]
  - GAIT DISTURBANCE [None]
  - HEMIPARESIS [None]
  - HERNIA [None]
  - INFLUENZA LIKE ILLNESS [None]
  - INJECTION SITE PRURITUS [None]
  - INJECTION SITE REACTION [None]
  - RESTLESSNESS [None]
  - SOMNOLENCE [None]
  - WEIGHT DECREASED [None]
